FAERS Safety Report 11146444 (Version 1)
Quarter: 2015Q2

REPORT INFORMATION
  Report Type: Report from Study
  Country: RO (occurrence: RO)
  Receive Date: 20150528
  Receipt Date: 20150528
  Transmission Date: 20150821
  Serious: Yes (Hospitalization)
  Sender: FDA-Public Use
  Company Number: RO-ABBVIE-15K-135-1395843-00

PATIENT
  Sex: Female

DRUGS (1)
  1. HUMIRA [Suspect]
     Active Substance: ADALIMUMAB
     Indication: RHEUMATOID ARTHRITIS
     Dosage: TEMPORARILY
     Route: 065
     Dates: start: 201011, end: 20150427

REACTIONS (3)
  - Headache [Not Recovered/Not Resolved]
  - Asthma [Not Recovered/Not Resolved]
  - Asthenia [Not Recovered/Not Resolved]
